FAERS Safety Report 9972853 (Version 1)
Quarter: 2014Q1

REPORT INFORMATION
  Report Type: Spontaneous
  Country: GB (occurrence: GB)
  Receive Date: 20140306
  Receipt Date: 20140306
  Transmission Date: 20141002
  Serious: Yes (Other)
  Sender: FDA-Public Use
  Company Number: GB-MYLANLABS-2014S1004492

PATIENT
  Age: 74 Year
  Sex: Female

DRUGS (2)
  1. CLOPIDOGREL [Suspect]
     Indication: ANTIPLATELET THERAPY
     Dosage: DOSAGE NOT STATED
     Route: 065
  2. GINKGO BILOBA [Interacting]
     Indication: MENOPAUSAL SYMPTOMS
     Dosage: DOSAGE NOT STATED
     Route: 065

REACTIONS (4)
  - Vaginal haemorrhage [Recovered/Resolved]
  - Haematuria [Recovered/Resolved]
  - Contusion [Recovered/Resolved]
  - Drug interaction [Recovered/Resolved]
